FAERS Safety Report 6259385-6 (Version None)
Quarter: 2009Q3

REPORT INFORMATION
  Report Type: 
  Country: None (occurrence: None)
  Receive Date: 20090706
  Receipt Date: 20090630
  Transmission Date: 20100115
  Serious: Yes (Death, Other)
  Sender: FDA-Public Use
  Company Number: 2009SP014333

PATIENT
  Age: 59 Year
  Sex: Male

DRUGS (3)
  1. TEMOZOLOMIDE [Suspect]
     Indication: OLIGODENDROGLIOMA
  2. LOMUSTINE [Suspect]
     Indication: OLIGODENDROGLIOMA
  3. VINCRISTINE [Suspect]
     Indication: OLIGODENDROGLIOMA

REACTIONS (2)
  - ACUTE MYELOID LEUKAEMIA [None]
  - MYELODYSPLASTIC SYNDROME [None]
